FAERS Safety Report 8907316 (Version 1)
Quarter: 2012Q4

REPORT INFORMATION
  Report Type: 
  Country: US (occurrence: US)
  Receive Date: 20121114
  Receipt Date: 20121114
  Transmission Date: 20130627
  Serious: Yes (Other)
  Sender: FDA-Public Use
  Company Number: PHEH2012US022380

PATIENT
  Age: 84 Year
  Sex: Female

DRUGS (1)
  1. GLEEVEC [Suspect]
     Indication: GASTRIC CANCER
     Dosage: 300 mg, daily
     Route: 048
     Dates: start: 20120522

REACTIONS (3)
  - Fall [Unknown]
  - Upper limb fracture [Unknown]
  - Pelvic fracture [Unknown]
